FAERS Safety Report 14048529 (Version 2)
Quarter: 2018Q1

REPORT INFORMATION
  Report Type: Report from Study
  Country: SV (occurrence: SV)
  Receive Date: 20171005
  Receipt Date: 20180201
  Transmission Date: 20180508
  Serious: Yes (Death, Hospitalization, Other)
  Sender: FDA-Public Use
  Company Number: SV-BAYER-2017-184863

PATIENT
  Age: 71 Year
  Sex: Male

DRUGS (1)
  1. NEXAVAR [Suspect]
     Active Substance: SORAFENIB
     Indication: HEPATOCELLULAR CARCINOMA
     Dosage: 400 MG, QD
     Dates: start: 20170723, end: 20180116

REACTIONS (9)
  - Dysstasia [None]
  - Slow speech [None]
  - Blood bilirubin increased [None]
  - Mobility decreased [None]
  - Gastric haemorrhage [Fatal]
  - Hepatic encephalopathy [None]
  - Fall [None]
  - Abdominal pain upper [None]
  - Therapy cessation [Recovered/Resolved]

NARRATIVE: CASE EVENT DATE: 20170916
